FAERS Safety Report 10073625 (Version 1)
Quarter: 2014Q2

REPORT INFORMATION
  Report Type: Report from Study
  Country: AT (occurrence: AT)
  Receive Date: 20140411
  Receipt Date: 20140411
  Transmission Date: 20141212
  Serious: Yes (Other)
  Sender: FDA-Public Use
  Company Number: AT-TEVA-474329USA

PATIENT
  Age: 62 Year
  Sex: Female

DRUGS (4)
  1. BENDAMUSTINE [Suspect]
     Indication: PLASMA CELL MYELOMA
     Dosage: UNKNOWN/D
     Route: 065
  2. VELCADE [Suspect]
     Indication: PLASMA CELL MYELOMA
     Dosage: UNKNOWN/D
     Route: 065
     Dates: start: 20120330, end: 20120419
  3. VELCADE [Suspect]
     Dosage: UNKNOWN/D
     Route: 065
     Dates: start: 20120309, end: 20120329
  4. VELCADE [Suspect]
     Dosage: UNKNOWN/D
     Route: 065
     Dates: start: 20130114, end: 20130411

REACTIONS (2)
  - Thrombocytopenia [Recovered/Resolved]
  - Cholelithiasis [Recovered/Resolved]
